FAERS Safety Report 11926864 (Version 2)
Quarter: 2016Q1

REPORT INFORMATION
  Report Type: Spontaneous
  Country: FR (occurrence: FR)
  Receive Date: 20160119
  Receipt Date: 20160125
  Transmission Date: 20160526
  Serious: Yes (Hospitalization, Other)
  Sender: FDA-Public Use
  Company Number: FR-PFIZER INC-2016013409

PATIENT
  Age: 3 Year
  Sex: Male
  Weight: 13.5 kg

DRUGS (1)
  1. ADVILMED ENFANTS ET NOURRISSONS [Suspect]
     Active Substance: IBUPROFEN
     Dosage: UNK
     Route: 048
     Dates: start: 201505, end: 20150515

REACTIONS (3)
  - Diverticular perforation [Recovered/Resolved]
  - Peritonitis [Recovered/Resolved]
  - Diverticulitis Meckel^s [Unknown]

NARRATIVE: CASE EVENT DATE: 20150515
